FAERS Safety Report 13434382 (Version 1)
Quarter: 2017Q2

REPORT INFORMATION
  Report Type: Spontaneous
  Country: US (occurrence: US)
  Receive Date: 20170412
  Receipt Date: 20170412
  Transmission Date: 20170830
  Serious: Yes (Hospitalization)
  Sender: FDA-Public Use
  Company Number: US-TARO-2017TAR00255

PATIENT
  Age: 11 Week
  Sex: Male
  Weight: 3.58 kg

DRUGS (1)
  1. LEVETIRACETAM. [Suspect]
     Active Substance: LEVETIRACETAM
     Indication: WRONG DRUG ADMINISTERED
     Dosage: 170 MG SINGLE DOSE (47 MG/KG)
     Route: 048

REACTIONS (3)
  - Wrong drug administered [Recovered/Resolved]
  - No adverse event [Not Recovered/Not Resolved]
  - Accidental overdose [Recovered/Resolved]
